FAERS Safety Report 18549910 (Version 6)
Quarter: 2021Q1

REPORT INFORMATION
  Report Type: Report from Study
  Country: CA (occurrence: CA)
  Receive Date: 20201126
  Receipt Date: 20210305
  Transmission Date: 20210419
  Serious: Yes (Death, Hospitalization, Other)
  Sender: FDA-Public Use
  Company Number: CA-TOLMAR, INC.-20CA024047

PATIENT
  Age: 62 Year
  Sex: Male

DRUGS (3)
  1. ELIGARD [Suspect]
     Active Substance: LEUPROLIDE ACETATE
     Indication: PROSTATE CANCER
     Dosage: 22.5 MG, Q 3 MONTH
     Route: 058
     Dates: start: 20200826
  2. ELIGARD [Suspect]
     Active Substance: LEUPROLIDE ACETATE
     Dosage: 22.5 MG, Q 3 MONTH
     Route: 058
     Dates: start: 20180710
  3. ELIGARD [Suspect]
     Active Substance: LEUPROLIDE ACETATE
     Indication: PROSTATE CANCER
     Dosage: 7.5 MG, Q 1 MONTH
     Route: 058
     Dates: start: 20201118

REACTIONS (9)
  - Malaise [Not Recovered/Not Resolved]
  - Prostate cancer [Fatal]
  - Pyrexia [Recovering/Resolving]
  - Urinary tract infection [Recovering/Resolving]
  - Pleural effusion [Recovering/Resolving]
  - Generalised oedema [Recovering/Resolving]
  - Immunosuppression [Unknown]
  - Pain [Recovering/Resolving]
  - Cerebrovascular accident [Unknown]

NARRATIVE: CASE EVENT DATE: 20201209
